FAERS Safety Report 9073300 (Version 1)
Quarter: 2013Q1

REPORT INFORMATION
  Report Type: Report from Study
  Country: US (occurrence: US)
  Receive Date: 20130128
  Receipt Date: 20130128
  Transmission Date: 20140127
  Serious: No
  Sender: FDA-Public Use
  Company Number: US-ABBOTT-12P-163-0901571-00

PATIENT
  Age: 21 Year
  Sex: Female

DRUGS (13)
  1. HUMIRA 40 MG/0.8 ML PEN [Suspect]
     Indication: CROHN^S DISEASE
     Dates: start: 20120120
  2. HUMIRA 40 MG/0.8 ML PEN [Suspect]
     Dates: start: 20120203
  3. NASONEX [Concomitant]
     Indication: HYPERSENSITIVITY
     Dosage: 2 SPRAYS IN EACH NOSTRIL DAILY
  4. CETIRIZINE [Concomitant]
     Indication: HYPERSENSITIVITY
     Dosage: DAILY
  5. AVIANE [Concomitant]
     Indication: CONTRACEPTION
     Dosage: DAILY
  6. STRATTERA [Concomitant]
     Indication: ATTENTION DEFICIT/HYPERACTIVITY DISORDER
     Dosage: DAILY
  7. CITALOPRAM [Concomitant]
     Indication: PANIC DISORDER
     Dosage: DAILY
  8. CITALOPRAM [Concomitant]
     Indication: DEPRESSION
  9. CITALOPRAM [Concomitant]
     Indication: ANXIETY
  10. MULTIVITAMIN [Concomitant]
     Indication: PRODUCT USED FOR UNKNOWN INDICATION
     Dosage: DAILY
  11. LOPERAMIDE [Concomitant]
     Indication: DIARRHOEA
  12. LIDOCAINE [Concomitant]
     Indication: MUSCULOSKELETAL PAIN
     Dosage: GEL
     Route: 061
  13. LIDOCAINE [Concomitant]
     Indication: PAIN

REACTIONS (4)
  - Injection site warmth [Not Recovered/Not Resolved]
  - Injection site nodule [Not Recovered/Not Resolved]
  - Injection site pain [Recovering/Resolving]
  - Screaming [Recovering/Resolving]
